FAERS Safety Report 13017599 (Version 2)
Quarter: 2019Q4

REPORT INFORMATION
  Report Type: Spontaneous
  Country: US (occurrence: US)
  Receive Date: 20161212
  Receipt Date: 20191202
  Transmission Date: 20200122
  Serious: No
  Sender: FDA-Public Use
  Company Number: US-PFIZER INC-2016569848

PATIENT
  Age: 49 Year
  Sex: Female

DRUGS (9)
  1. DILANTIN [Suspect]
     Active Substance: PHENYTOIN
     Indication: GENERALISED TONIC-CLONIC SEIZURE
     Dosage: 450 MG, DAILY, 150MG IN THE MORNING, 100MG IN THE EVENING, AND 200MG AT NIGHT
  2. DILANTIN [Suspect]
     Active Substance: PHENYTOIN
     Dosage: 50 MG, UNK  (QUANTITY FOR 90 DAYS: 90)
     Route: 048
  3. DILANTIN [Suspect]
     Active Substance: PHENYTOIN
     Dosage: 450 MG, DAILY, 250MG IN THE MORNING AND 200MG AT NIGHT
  4. DILANTIN [Suspect]
     Active Substance: PHENYTOIN
     Indication: GENERALISED TONIC-CLONIC SEIZURE
     Dosage: 450 MG, DAILY, 150MG IN THE MORNING, 100MG IN THE EVENING, AND 200MG AT NIGHT
  5. ATENOLOL. [Concomitant]
     Active Substance: ATENOLOL
     Indication: HYPERTENSION
     Dosage: 12.5 MG, DAILY, HALF A TABLET A DAY
  6. DILANTIN [Suspect]
     Active Substance: PHENYTOIN
     Dosage: 100 MG, UNK (QUANTITY FOR 90 DAYS: 360)
     Route: 048
  7. LEVOTHYROXINE. [Concomitant]
     Active Substance: LEVOTHYROXINE
     Indication: MENOPAUSE
     Dosage: 50 MG, 1X/DAY
  8. DILANTIN [Suspect]
     Active Substance: PHENYTOIN
     Dosage: 450 MG, DAILY, 250MG IN THE MORNING AND 200MG AT NIGHT
  9. DILANTIN [Suspect]
     Active Substance: PHENYTOIN
     Dosage: 100 MG, UNK
     Route: 048

REACTIONS (1)
  - Anticonvulsant drug level decreased [Unknown]

NARRATIVE: CASE EVENT DATE: 20161122
